FAERS Safety Report 11433357 (Version 1)
Quarter: 2015Q3

REPORT INFORMATION
  Report Type: Spontaneous
  Country: AU (occurrence: AU)
  Receive Date: 20150830
  Receipt Date: 20150830
  Transmission Date: 20151125
  Serious: Yes (Other)
  Sender: FDA-Public Use
  Company Number: AU-ABBVIE-13P-008-1181791-00

PATIENT
  Age: 45 Year
  Sex: Female

DRUGS (1)
  1. HUMIRA [Suspect]
     Active Substance: ADALIMUMAB
     Indication: RHEUMATOID ARTHRITIS
     Route: 065
     Dates: start: 20131008, end: 20131128

REACTIONS (2)
  - Pleurisy [Not Recovered/Not Resolved]
  - Pulmonary fibrosis [Unknown]

NARRATIVE: CASE EVENT DATE: 20131127
